FAERS Safety Report 4718503-9 (Version None)
Quarter: 2005Q3

REPORT INFORMATION
  Report Type: 
  Country: None (occurrence: None)
  Receive Date: 20050719
  Receipt Date: 20050519
  Transmission Date: 20060218
  Serious: Yes (Other)
  Sender: FDA-Public Use
  Company Number: 2005065178

PATIENT
  Age: 51 Year
  Sex: Female
  Weight: 56.6996 kg

DRUGS (1)
  1. CELEBREX [Suspect]
     Indication: ILL-DEFINED DISORDER
     Dosage: UNKNONWN (200 MG, UNKNOWN), ORAL
     Route: 048

REACTIONS (3)
  - HEARING IMPAIRED [None]
  - MYOCARDIAL INFARCTION [None]
  - WEIGHT INCREASED [None]
